FAERS Safety Report 5933714 (Version 2)
Quarter: 2013Q2

REPORT INFORMATION
  Report Type: Spontaneous
  Country: GB (occurrence: None)
  Receive Date: 20051121
  Receipt Date: 20130419
  Transmission Date: 20140414
  Serious: Yes (Hospitalization)
  Sender: FDA-Public Use
  Company Number: 2005US-01137

PATIENT
  Age: 31 Year
  Sex: Female

DRUGS (9)
  1. LOPINAVIR [Suspect]
     Indication: ANTIRETROVIRAL THERAPY
     Dates: start: 200407
  2. CO-TRIMOXAZOLE (CO-TRIMOXAZOLE) [Concomitant]
  3. DIDANOSINE [Suspect]
     Indication: ANTIRETROVIRAL THERAPY
  4. EFAVIRENZ [Suspect]
     Indication: HIV INFECTION
  5. NEVIRAPINE [Suspect]
     Indication: HIV INFECTION
  6. LAMIVUDINE [Suspect]
     Indication: ANTIRETROVIRAL THERAPY
  7. TENOFOVIR [Suspect]
     Indication: ANTIRETROVIRAL THERAPY
  8. ZIDOVUDINE [Suspect]
     Indication: ANTIRETROVIRAL THERAPY
  9. CIDOFOVIR [Suspect]
     Indication: ANTIRETROVIRAL THERAPY

REACTIONS (29)
  - Immune reconstitution inflammatory syndrome [None]
  - Leukopenia [None]
  - Demyelination [None]
  - Agitation [None]
  - Spleen disorder [None]
  - Depression [None]
  - Headache [None]
  - Anaemia [None]
  - Liver disorder [None]
  - Muscular weakness [None]
  - Apraxia [None]
  - Hyperreflexia [None]
  - Dysarthria [None]
  - Vomiting [None]
  - Extensor plantar response [None]
  - Epstein-Barr virus infection [None]
  - Eye haemorrhage [None]
  - Nausea [None]
  - No therapeutic response [None]
  - Pyramidal tract syndrome [None]
  - Cerebellar syndrome [None]
  - Upper motor neurone lesion [None]
  - VIIth nerve paralysis [None]
  - Vasculitis [None]
  - Asthenia [None]
  - Retinal haemorrhage [None]
  - Lymphadenopathy [None]
  - Lymph node tuberculosis [None]
  - Somnolence [None]
